FAERS Safety Report 5694770-2 (Version None)
Quarter: 2008Q2

REPORT INFORMATION
  Report Type: 
  Country: None (occurrence: None)
  Receive Date: 20080404
  Receipt Date: 20080327
  Transmission Date: 20081010
  Serious: Yes (Hospitalization)
  Sender: FDA-Public Use
  Company Number: GB-ASTRAZENECA-2008GB00507

PATIENT
  Sex: Female
  Weight: 132 kg

DRUGS (9)
  1. SEROQUEL [Suspect]
     Indication: PSYCHOTIC DISORDER
     Route: 048
  2. SEROQUEL [Suspect]
     Indication: SCHIZOPHRENIA
     Route: 048
  3. CLINDAMYCIN HCL [Suspect]
     Indication: SKIN DISORDER
     Route: 048
     Dates: end: 20080301
  4. RIFAMPICIN [Suspect]
     Indication: SKIN DISORDER
     Route: 048
     Dates: end: 20080301
  5. FLUOXETINE [Concomitant]
     Indication: DEPRESSION
     Route: 048
  6. ORPHENADRINE CITRATE [Concomitant]
     Indication: ADVERSE DRUG REACTION
     Route: 048
  7. HALOPERIDOL [Concomitant]
     Indication: MANIA
     Route: 048
  8. SENNA [Concomitant]
     Indication: CONSTIPATION
     Route: 048
  9. PROZAC [Concomitant]

REACTIONS (2)
  - DRUG INTERACTION [None]
  - MENTAL IMPAIRMENT [None]
